FAERS Safety Report 8104908-5 (Version None)
Quarter: 2012Q1

REPORT INFORMATION
  Report Type: 
  Country: None (occurrence: None)
  Receive Date: 20120201
  Receipt Date: 20120130
  Transmission Date: 20120608
  Serious: Yes (Hospitalization, Congenital Anomaly)
  Sender: FDA-Public Use
  Company Number: US-GLAXOSMITHKLINE-A0950439A

PATIENT
  Sex: Female

DRUGS (8)
  1. VALTREX [Concomitant]
     Dates: start: 20050901
  2. METOCLOPRAMIDE [Concomitant]
  3. PROMETHAZINE [Concomitant]
  4. BUSPIRONE HCL [Concomitant]
  5. ADVAIR DISKUS 100/50 [Concomitant]
     Dates: start: 20050901
  6. OXYCODONE HCL AND ACETAMINOPHEN [Concomitant]
     Dates: start: 20050901
  7. PAXIL CR [Suspect]
     Indication: PRODUCT USED FOR UNKNOWN INDICATION
     Route: 064
     Dates: start: 20031202, end: 20050123
  8. ONDANSETRON HCL [Concomitant]
     Dates: start: 20050401

REACTIONS (3)
  - TALIPES [None]
  - CONGENITAL EYE DISORDER [None]
  - FOETAL EXPOSURE DURING PREGNANCY [None]
